FAERS Safety Report 8757277 (Version 1)
Quarter: 2012Q4

REPORT INFORMATION
  Report Type: 
  Country: US (occurrence: US)
  Receive Date: 20120828
  Receipt Date: 20120828
  Transmission Date: 20130627
  Serious: No
  Sender: FDA-Public Use
  Company Number: US-B.I. PHARMACEUTICALS,INC./RIDGEFIELD-2012-BP-20386BP

PATIENT
  Sex: Female

DRUGS (14)
  1. PRADAXA [Suspect]
     Indication: ATRIAL FIBRILLATION
     Dosage: 300 mg
     Route: 048
     Dates: start: 201105
  2. TOPROL XL [Concomitant]
     Indication: HYPERTENSION
     Dosage: 150 mg
     Route: 048
  3. TOPROL XL [Concomitant]
     Indication: HEART RATE IRREGULAR
  4. CRESTOR [Concomitant]
     Indication: BLOOD CHOLESTEROL INCREASED
     Dosage: 5 mg
     Route: 048
  5. ZETIA [Concomitant]
     Indication: BLOOD CHOLESTEROL INCREASED
     Dosage: 10 mg
     Route: 048
  6. OMEPRAZOLE [Concomitant]
     Indication: GASTRITIS
     Dosage: 150 mg
     Route: 048
  7. PREMARIN VAGINAL CREAM [Concomitant]
     Route: 067
  8. ESTRING [Concomitant]
     Indication: VULVOVAGINAL DRYNESS
  9. VALIUM [Concomitant]
     Indication: STRESS
     Route: 048
  10. VALIUM [Concomitant]
     Indication: ANXIETY
  11. MULTI VITAMIN [Concomitant]
     Indication: SUPPLEMENTATION THERAPY
     Route: 048
  12. FISH OIL [Concomitant]
     Indication: SUPPLEMENTATION THERAPY
     Route: 048
  13. COQ 10 [Concomitant]
     Indication: SUPPLEMENTATION THERAPY
     Route: 048
  14. GREEN TEA [Concomitant]
     Indication: SUPPLEMENTATION THERAPY
     Route: 048

REACTIONS (2)
  - Diarrhoea [Not Recovered/Not Resolved]
  - Frequent bowel movements [Not Recovered/Not Resolved]
